FAERS Safety Report 6341047-8 (Version None)
Quarter: 2009Q3

REPORT INFORMATION
  Report Type: 
  Country: None (occurrence: None)
  Receive Date: 20090904
  Receipt Date: 20090901
  Transmission Date: 20100115
  Serious: Yes (Other)
  Sender: FDA-Public Use
  Company Number: A0805737A

PATIENT
  Age: 83 Year
  Sex: Female

DRUGS (2)
  1. FLOVENT [Suspect]
     Indication: ASTHMA
     Route: 055
     Dates: start: 20081201
  2. UNKNOWN [Concomitant]

REACTIONS (6)
  - AMNESIA [None]
  - DEAFNESS [None]
  - DYSGEUSIA [None]
  - DYSPHONIA [None]
  - RETCHING [None]
  - VERTIGO [None]
